FAERS Safety Report 7281520-1 (Version None)
Quarter: 2011Q1

REPORT INFORMATION
  Report Type: 
  Country: None (occurrence: None)
  Receive Date: 20110208
  Receipt Date: 20110203
  Transmission Date: 20110831
  Serious: Yes (Other)
  Sender: FDA-Public Use
  Company Number: GB-PFIZER INC-2011025481

PATIENT
  Age: 36 Year

DRUGS (1)
  1. PIPERACILLIN AND TAZOBACTAM [Suspect]
     Dosage: UNK

REACTIONS (4)
  - PAIN [None]
  - EXTRAVASATION [None]
  - INFUSION SITE INFLAMMATION [None]
  - SKIN ULCER [None]
